FAERS Safety Report 25969224 (Version 1)
Quarter: 2025Q4

REPORT INFORMATION
  Report Type: Spontaneous
  Country: US (occurrence: US)
  Receive Date: 20251028
  Receipt Date: 20251028
  Transmission Date: 20260118
  Serious: Yes (Hospitalization, Other)
  Sender: NOVO NORDISK
  Company Number: US-NOVOPROD-1544941

PATIENT
  Age: 74 Year
  Sex: Female

DRUGS (2)
  1. OZEMPIC [Suspect]
     Active Substance: SEMAGLUTIDE
     Dosage: 2 MG, QW
     Route: 058
  2. OZEMPIC [Suspect]
     Active Substance: SEMAGLUTIDE
     Indication: Type 2 diabetes mellitus
     Dosage: 0.25 MG, QW
     Route: 058

REACTIONS (6)
  - Optic ischaemic neuropathy [Not Recovered/Not Resolved]
  - Eye operation [Unknown]
  - Glaucoma [Not Recovered/Not Resolved]
  - Hordeolum [Not Recovered/Not Resolved]
  - Hordeolum [Recovered/Resolved]
  - Corrective lens user [Unknown]

NARRATIVE: CASE EVENT DATE: 20230101
